FAERS Safety Report 10154842 (Version 2)
Quarter: 2014Q2

REPORT INFORMATION
  Report Type: Report from Study
  Country: FR (occurrence: FR)
  Receive Date: 20140506
  Receipt Date: 20140620
  Transmission Date: 20141212
  Serious: Yes (Hospitalization)
  Sender: FDA-Public Use
  Company Number: FR-DSJP-DSE-2014-106553

PATIENT
  Sex: 0

DRUGS (3)
  1. AXELER 40 MG/ 10 MG [Suspect]
     Indication: HYPERTENSION
     Dosage: 40/10 MG QD
     Route: 048
     Dates: start: 201103, end: 20130614
  2. STILNOX [Concomitant]
     Indication: PRODUCT USED FOR UNKNOWN INDICATION
     Route: 048
  3. PROZAC [Concomitant]
     Indication: PRODUCT USED FOR UNKNOWN INDICATION
     Route: 048

REACTIONS (6)
  - Immune thrombocytopenic purpura [Unknown]
  - Intestinal villi atrophy [Recovered/Resolved]
  - Diarrhoea [Recovered/Resolved]
  - Weight decreased [Unknown]
  - Hypokalaemia [Unknown]
  - Vitamin K deficiency [Recovered/Resolved]
